FAERS Safety Report 8055085-0 (Version None)
Quarter: 2012Q1

REPORT INFORMATION
  Report Type: 
  Country: None (occurrence: None)
  Receive Date: 20120119
  Receipt Date: 20120104
  Transmission Date: 20120608
  Serious: Yes (Other)
  Sender: FDA-Public Use
  Company Number: FR-CELGENEUS-056-C5013-12010364

PATIENT
  Sex: Male

DRUGS (11)
  1. PRAVASTATIN [Concomitant]
     Dosage: 40 MILLIGRAM
     Route: 048
     Dates: start: 20070101
  2. CALCIUM CARBONATE [Concomitant]
     Indication: PROPHYLAXIS
     Dosage: 500 MILLIGRAM
     Route: 048
     Dates: start: 20090901
  3. VALACYCLOVIR HYDROCHLORIDE [Concomitant]
     Indication: PROPHYLAXIS
     Dosage: 1000 MILLIGRAM
     Route: 048
     Dates: start: 20090505
  4. LENALIDOMIDE [Suspect]
     Indication: MULTIPLE MYELOMA
     Dosage: 25 MILLIGRAM
     Route: 048
     Dates: start: 20090505
  5. DEXAMETHASONE TAB [Suspect]
     Indication: MULTIPLE MYELOMA
     Dosage: 20 MILLIGRAM
     Route: 065
     Dates: start: 20090505
  6. ZOFRAN [Concomitant]
     Dosage: 16 MILLIGRAM
     Route: 048
     Dates: start: 20091020
  7. LENALIDOMIDE [Suspect]
     Dosage: 25 MILLIGRAM
     Route: 048
     Dates: start: 20111223
  8. DEXAMETHASONE TAB [Suspect]
     Dosage: 20 MILLIGRAM
     Route: 065
     Dates: start: 20111223
  9. SOTALOL HCL [Concomitant]
     Indication: ATRIAL FLUTTER
     Dosage: 80 MILLIGRAM
     Route: 048
     Dates: start: 20090627
  10. CEFUROXIME [Concomitant]
     Indication: BRONCHITIS
     Dosage: 1000 MILLIGRAM
     Route: 048
     Dates: start: 20100823
  11. LOVENOX [Concomitant]
     Indication: THROMBOSIS PROPHYLAXIS
     Dosage: .4 MILLILITER
     Route: 058
     Dates: start: 20100921

REACTIONS (1)
  - COLON CANCER METASTATIC [None]
